FAERS Safety Report 18424197 (Version 1)
Quarter: 2020Q4

REPORT INFORMATION
  Report Type: Other
  Country: CA (occurrence: CA)
  Receive Date: 20201025
  Receipt Date: 20201025
  Transmission Date: 20210114
  Serious: Yes (Other)
  Sender: FDA-Public Use
  Company Number: CA-ROCHE-2687130

PATIENT
  Sex: Female

DRUGS (6)
  1. SYNTHROID [Concomitant]
     Active Substance: LEVOTHYROXINE SODIUM
     Dosage: FREQUENCY: DAYS 1 1; STARTED BEFORE OCREVUS
  2. SOLIFENACIN [Concomitant]
     Active Substance: SOLIFENACIN
     Dosage: 10 MG DAYS 1 1
     Dates: start: 2019
  3. DULOXETINE. [Concomitant]
     Active Substance: DULOXETINE
     Dosage: BID; DRUG FREQUENCY DAYS 1 1
  4. OCREVUS [Suspect]
     Active Substance: OCRELIZUMAB
     Indication: RELAPSING-REMITTING MULTIPLE SCLEROSIS
     Dosage: 300 MG AT DAY 0 AND 14, THEN 600 MG EVERY 6 MONTH?CONCENTRATE FOR INTRAVENOUS INFUSION
     Route: 042
     Dates: start: 20180926
  5. PREGABALIN. [Concomitant]
     Active Substance: PREGABALIN
     Dosage: ONCE DAILY; DRUG FREQUENCY DAYS 1 1
     Dates: start: 202003
  6. PANTOPRAZOLE [Concomitant]
     Active Substance: PANTOPRAZOLE
     Dosage: DRUG FREQUENCY: DAYS 2 2; BID
     Dates: start: 201912

REACTIONS (1)
  - Lymphoma [Not Recovered/Not Resolved]
